FAERS Safety Report 7433519-X (Version None)
Quarter: 2011Q2

REPORT INFORMATION
  Report Type: 
  Country: None (occurrence: None)
  Receive Date: 20110422
  Receipt Date: 20110211
  Transmission Date: 20111010
  Serious: No
  Sender: FDA-Public Use
  Company Number: US-MUTUAL PHARMACEUTICAL COMPANY, INC.-CLHC20110008

PATIENT
  Sex: Male
  Weight: 81.72 kg

DRUGS (6)
  1. PERCOCET [Concomitant]
     Indication: PAIN
     Route: 048
  2. PROBENECID [Concomitant]
     Indication: GOUT
     Route: 048
  3. COLCHICINE [Suspect]
     Indication: GOUT
     Route: 048
     Dates: start: 20100716, end: 20101201
  4. HYDROCHLOROTHIAZIDE [Concomitant]
     Indication: HYPERTENSION
     Route: 048
  5. FLECTOR [Concomitant]
     Indication: PAIN
     Route: 062
  6. NEXIUM [Concomitant]
     Indication: GASTROOESOPHAGEAL REFLUX DISEASE
     Route: 048

REACTIONS (2)
  - DIARRHOEA [None]
  - MUSCULAR WEAKNESS [None]
